FAERS Safety Report 24341797 (Version 1)
Quarter: 2024Q3

REPORT INFORMATION
  Report Type: Spontaneous
  Country: US (occurrence: US)
  Receive Date: 20240920
  Receipt Date: 20240920
  Transmission Date: 20241017
  Serious: No
  Sender: JOHNSON AND JOHNSON
  Company Number: US-JNJFOC-20240935040

PATIENT
  Age: 89 Year
  Sex: Male

DRUGS (2)
  1. MENS ROGAINE EXTRA STRENGTH [Suspect]
     Active Substance: MINOXIDIL
     Indication: Alopecia
     Dosage: MORE THAN HALF A CAP FULL
     Route: 061
     Dates: start: 202409, end: 202409
  2. MENS ROGAINE EXTRA STRENGTH [Suspect]
     Active Substance: MINOXIDIL
     Indication: Accidental exposure to product
     Dosage: MORE THAN HALF A CAP FULL
     Route: 047
     Dates: start: 202409, end: 202409

REACTIONS (5)
  - Eye irritation [Recovering/Resolving]
  - Overdose [Unknown]
  - Accidental exposure to product [Unknown]
  - Poor quality product administered [Unknown]
  - Product container issue [Unknown]

NARRATIVE: CASE EVENT DATE: 20240901
